FAERS Safety Report 7217686-9 (Version None)
Quarter: 2011Q1

REPORT INFORMATION
  Report Type: 
  Country: None (occurrence: None)
  Receive Date: 20110110
  Receipt Date: 20101228
  Transmission Date: 20110831
  Serious: Yes (Other)
  Sender: FDA-Public Use
  Company Number: US-ROCHE-752121

PATIENT
  Sex: Female

DRUGS (5)
  1. ADRIAMYCIN PFS [Suspect]
     Indication: BREAST CANCER
     Route: 042
  2. TAXOTERE [Suspect]
     Indication: BREAST CANCER
     Route: 042
  3. CYTOXAN [Suspect]
     Indication: BREAST CANCER
     Route: 042
  4. TYKERB [Concomitant]
  5. HERCEPTIN [Suspect]
     Indication: BREAST CANCER
     Route: 042

REACTIONS (1)
  - METASTASES TO LUNG [None]
